FAERS Safety Report 21218875 (Version 1)
Quarter: 2022Q3

REPORT INFORMATION
  Report Type: Spontaneous
  Country: US (occurrence: US)
  Receive Date: 20220816
  Receipt Date: 20220816
  Transmission Date: 20221026
  Serious: Yes (Hospitalization)
  Sender: FDA-Public Use
  Company Number: US-LUNDBECK-DKLU3048455

PATIENT
  Age: 3 Year
  Sex: Male

DRUGS (4)
  1. SABRIL [Suspect]
     Active Substance: VIGABATRIN
     Indication: Hydrocephalus
     Route: 048
  2. SABRIL [Suspect]
     Active Substance: VIGABATRIN
     Indication: Infantile spasms
  3. SABRIL [Suspect]
     Active Substance: VIGABATRIN
     Indication: Lennox-Gastaut syndrome
  4. SABRIL [Suspect]
     Active Substance: VIGABATRIN
     Indication: Seizure

REACTIONS (1)
  - Seizure [Not Recovered/Not Resolved]
